FAERS Safety Report 4637830-7 (Version None)
Quarter: 2005Q2

REPORT INFORMATION
  Report Type: 
  Country: None (occurrence: None)
  Receive Date: 20050418
  Receipt Date: 20050406
  Transmission Date: 20051028
  Serious: Yes (Death, Hospitalization)
  Sender: FDA-Public Use
  Company Number: GB-BRISTOL-MYERS SQUIBB COMPANY-12925129

PATIENT
  Age: 28 Year
  Sex: Female
  Weight: 140 kg

DRUGS (3)
  1. ARIPIPRAZOLE [Suspect]
     Route: 065
  2. ZYPREXA [Suspect]
     Indication: SCHIZOPHRENIA
     Route: 048
  3. ZOPICLONE [Concomitant]
     Route: 065

REACTIONS (3)
  - ABNORMAL BEHAVIOUR [None]
  - ASPHYXIA [None]
  - WEIGHT INCREASED [None]
